FAERS Safety Report 12356646 (Version 3)
Quarter: 2016Q3

REPORT INFORMATION
  Report Type: Spontaneous
  Country: US (occurrence: US)
  Receive Date: 20160511
  Receipt Date: 20160817
  Transmission Date: 20161109
  Serious: Yes (Other)
  Sender: FDA-Public Use
  Company Number: US-ASTRAZENECA-2016SE48863

PATIENT
  Age: 791 Month
  Sex: Male

DRUGS (11)
  1. METOPROLOL. [Suspect]
     Active Substance: METOPROLOL
     Route: 065
  2. ZETIA [Concomitant]
     Active Substance: EZETIMIBE
     Route: 065
  3. LOSARTAN. [Concomitant]
     Active Substance: LOSARTAN
     Route: 065
  4. CRESTOR [Suspect]
     Active Substance: ROSUVASTATIN CALCIUM
     Indication: BLOOD CHOLESTEROL INCREASED
     Route: 048
  5. ATENOLOL. [Suspect]
     Active Substance: ATENOLOL
     Route: 065
  6. XTANDI [Suspect]
     Active Substance: ENZALUTAMIDE
     Indication: PROSTATE CANCER
     Route: 048
     Dates: start: 20150122
  7. OMEGA 3 [Concomitant]
     Active Substance: OMEGA-3 FATTY ACIDS
     Route: 065
  8. XGEVA [Suspect]
     Active Substance: DENOSUMAB
     Indication: PRODUCT USED FOR UNKNOWN INDICATION
     Route: 065
  9. ASPIRIN. [Concomitant]
     Active Substance: ASPIRIN
  10. LUPRON [Suspect]
     Active Substance: LEUPROLIDE ACETATE
     Indication: PRODUCT USED FOR UNKNOWN INDICATION
     Route: 065
  11. FENOFIBRATE. [Concomitant]
     Active Substance: FENOFIBRATE
     Route: 065

REACTIONS (19)
  - Bone pain [Not Recovered/Not Resolved]
  - Metastases to pelvis [Unknown]
  - Fatigue [Not Recovered/Not Resolved]
  - Adverse event [Recovering/Resolving]
  - Liver disorder [Not Recovered/Not Resolved]
  - Decreased appetite [Recovering/Resolving]
  - Gastroenteritis norovirus [Not Recovered/Not Resolved]
  - Bursitis [Recovering/Resolving]
  - Tremor [Not Recovered/Not Resolved]
  - Bursitis [Recovering/Resolving]
  - Insomnia [Not Recovered/Not Resolved]
  - Prostate cancer [Unknown]
  - Gait disturbance [Not Recovered/Not Resolved]
  - Hot flush [Not Recovered/Not Resolved]
  - Nasopharyngitis [Not Recovered/Not Resolved]
  - Metastases to chest wall [Unknown]
  - Metastases to spine [Unknown]
  - Malignant neoplasm progression [Not Recovered/Not Resolved]
  - Nausea [Not Recovered/Not Resolved]

NARRATIVE: CASE EVENT DATE: 201206
